FAERS Safety Report 7961746-1 (Version None)
Quarter: 2011Q4

REPORT INFORMATION
  Report Type: 
  Country: None (occurrence: None)
  Receive Date: 20111202
  Receipt Date: 20111202
  Transmission Date: 20120403
  Serious: Yes (Life-Threatening)
  Sender: FDA-Public Use
  Company Number: None

PATIENT
  Weight: 85.7298 kg

DRUGS (6)
  1. OMEPRAZOLE [Concomitant]
  2. NPH INSULIN [Concomitant]
  3. METFORMIN HCL [Concomitant]
  4. CURAD MEDIPLAST CORN CALLUS + WART... 40% SALICYLIC ACID MEDLINE INDUS [Suspect]
     Indication: HYPERKERATOSIS
     Dosage: 2 ^ X 3^ PAD 24 HOURS
     Route: 062
     Dates: start: 20110619, end: 20110627
  5. LISINOPRIL [Concomitant]
  6. HYDROCHLOROTHIAZIDE [Concomitant]

REACTIONS (2)
  - CEREBROVASCULAR ACCIDENT [None]
  - NERVE INJURY [None]
